FAERS Safety Report 14894389 (Version 2)
Quarter: 2019Q2

REPORT INFORMATION
  Report Type: Spontaneous
  Country: US (occurrence: US)
  Receive Date: 20180515
  Receipt Date: 20190506
  Transmission Date: 20190711
  Serious: No
  Sender: FDA-Public Use
  Company Number: US-AMGEN-USASP2018064068

PATIENT
  Age: 64 Year
  Sex: Female

DRUGS (1)
  1. ENBREL [Suspect]
     Active Substance: ETANERCEPT
     Indication: ARTHRITIS
     Dosage: 25 MILLIGRAM, 2 TIMES/WK
     Route: 065
     Dates: start: 2016

REACTIONS (4)
  - Injection site erythema [Unknown]
  - Injection site pruritus [Unknown]
  - Injection site rash [Unknown]
  - Off label use [Unknown]
